FAERS Safety Report 8841159 (Version 3)
Quarter: 2014Q1

REPORT INFORMATION
  Report Type: Spontaneous
  Country: US (occurrence: US)
  Receive Date: 20121015
  Receipt Date: 20140224
  Transmission Date: 20141002
  Serious: Yes (Hospitalization, Disabling, Other)
  Sender: FDA-Public Use
  Company Number: US-009507513-1203USA03461

PATIENT
  Sex: Female

DRUGS (7)
  1. FOSAMAX [Suspect]
     Indication: OSTEOPOROSIS
     Dosage: 70 MG, QW
     Route: 048
     Dates: start: 20041129, end: 20080203
  2. FOSAMAX [Suspect]
     Indication: OSTEOPENIA
  3. FOSAMAX [Suspect]
     Indication: OSTEOPOROSIS
     Dosage: 70 MG, UNK
     Route: 048
     Dates: start: 20080228, end: 20080713
  4. ALENDRONATE SODIUM [Suspect]
     Indication: OSTEOPOROSIS
     Dosage: UNK
     Route: 048
     Dates: start: 20081007, end: 2010
  5. VITAMINS (UNSPECIFIED) [Concomitant]
  6. CALCIUM (UNSPECIFIED) [Concomitant]
  7. VITAMIN D (UNSPECIFIED) [Concomitant]

REACTIONS (21)
  - Femur fracture [Recovered/Resolved]
  - Open reduction of fracture [Unknown]
  - Bone density decreased [Unknown]
  - Osteoporosis [Unknown]
  - Stress fracture [Unknown]
  - Small intestinal obstruction [Unknown]
  - Surgery [Unknown]
  - Femur fracture [Unknown]
  - Hypotension [Recovering/Resolving]
  - Anaemia postoperative [Recovering/Resolving]
  - Depression [Unknown]
  - Post-traumatic stress disorder [Unknown]
  - Anxiety [Unknown]
  - Skin ulcer [Unknown]
  - Foot fracture [Unknown]
  - Hypertension [Unknown]
  - Sinus tachycardia [Unknown]
  - Cholecystitis acute [Unknown]
  - Cholelithiasis [Unknown]
  - Arthralgia [Unknown]
  - Pain in extremity [Unknown]
